FAERS Safety Report 13449169 (Version 1)
Quarter: 2017Q2

REPORT INFORMATION
  Report Type: Spontaneous
  Country: US (occurrence: US)
  Receive Date: 20170417
  Receipt Date: 20170417
  Transmission Date: 20170830
  Serious: No
  Sender: FDA-Public Use
  Company Number: US-MANNKIND CORPORATION-2017MK000012

PATIENT
  Age: 68 Year
  Sex: Female
  Weight: 56.3 kg

DRUGS (6)
  1. AFREZZA [Suspect]
     Active Substance: INSULIN HUMAN
     Dates: start: 2016
  2. AFREZZA [Suspect]
     Active Substance: INSULIN HUMAN
  3. LIOTHYRONINE [Concomitant]
     Active Substance: LIOTHYRONINE
     Indication: THYROID DISORDER
     Dates: start: 201701, end: 201701
  4. AFREZZA [Suspect]
     Active Substance: INSULIN HUMAN
     Indication: TYPE 1 DIABETES MELLITUS
     Dates: start: 20170103
  5. AFREZZA [Suspect]
     Active Substance: INSULIN HUMAN
     Dates: start: 20170103
  6. HUMALOG INSULIN PUMP [Concomitant]
     Indication: TYPE 1 DIABETES MELLITUS

REACTIONS (8)
  - Drug ineffective [Not Recovered/Not Resolved]
  - Epistaxis [Recovered/Resolved]
  - Adverse event [Unknown]
  - Incorrect route of drug administration [Unknown]
  - Product physical issue [Unknown]
  - Blood glucose decreased [Unknown]
  - Blood glucose fluctuation [Unknown]
  - Blood glucose increased [Not Recovered/Not Resolved]

NARRATIVE: CASE EVENT DATE: 201701
